FAERS Safety Report 7374066-3 (Version None)
Quarter: 2011Q1

REPORT INFORMATION
  Report Type: 
  Country: None (occurrence: None)
  Receive Date: 20110325
  Receipt Date: 20110317
  Transmission Date: 20110831
  Serious: Yes (Other)
  Sender: FDA-Public Use
  Company Number: US-ASTELLAS-2011US001130

PATIENT
  Age: 64 Year
  Sex: Male

DRUGS (1)
  1. LEXISCAN [Suspect]
     Indication: SCAN MYOCARDIAL PERFUSION
     Dosage: UNK
     Route: 042
     Dates: start: 20110317, end: 20110317

REACTIONS (4)
  - PARKINSONISM [None]
  - EXTRAVASATION [None]
  - INFUSION SITE PAIN [None]
  - CARDIAC DISORDER [None]
